FAERS Safety Report 9265970 (Version 1)
Quarter: 2013Q2

REPORT INFORMATION
  Report Type: Spontaneous
  Country: US (occurrence: US)
  Receive Date: 20130501
  Receipt Date: 20130501
  Transmission Date: 20140414
  Serious: Yes (Hospitalization)
  Sender: FDA-Public Use
  Company Number: US-WATSON-2013-07518

PATIENT
  Age: 75 Year
  Sex: Female
  Weight: 59 kg

DRUGS (6)
  1. PROPRANOLOL (WATSON LABORATORIES) [Suspect]
     Indication: TREMOR
     Dosage: 40 MG, BID
     Route: 048
  2. TRAMADOL [Suspect]
     Indication: TREMOR
     Dosage: 250 MG, BID
     Route: 065
     Dates: start: 1996
  3. AMLODIPINE [Concomitant]
     Indication: HYPERTENSION
     Dosage: 10 MG, DAILY
     Route: 065
  4. LOSARTAN [Concomitant]
     Indication: HYPERTENSION
     Dosage: 50 MG, BID
     Route: 065
  5. ISOSORBIDE MONONITRATE [Concomitant]
     Indication: PRODUCT USED FOR UNKNOWN INDICATION
     Dosage: 30 MG, BID
  6. HYDROCHLOROTHIAZIDE [Concomitant]
     Indication: DIURETIC THERAPY
     Dosage: 12.5 MG
     Route: 048

REACTIONS (2)
  - Hyperhidrosis [Recovered/Resolved]
  - Tremor [Unknown]
